FAERS Safety Report 8397923-8 (Version None)
Quarter: 2012Q2

REPORT INFORMATION
  Report Type: 
  Country: None (occurrence: None)
  Receive Date: 20120531
  Receipt Date: 20120529
  Transmission Date: 20120825
  Serious: No
  Sender: FDA-Public Use
  Company Number: PHEH2012US010931

PATIENT
  Sex: Female

DRUGS (6)
  1. IMDUR [Concomitant]
  2. TASIGNA [Suspect]
     Dosage: 300 MG, Q12H
     Route: 048
  3. LASIX [Concomitant]
  4. POTASSIUM CHLORIDE [Concomitant]
  5. ALDACTONE [Concomitant]
  6. MIRAPEX [Concomitant]

REACTIONS (2)
  - RASH [None]
  - PAIN IN JAW [None]
